FAERS Safety Report 15328533 (Version 2)
Quarter: 2020Q1

REPORT INFORMATION
  Report Type: Spontaneous
  Country: JP (occurrence: JP)
  Receive Date: 20180829
  Receipt Date: 20200228
  Transmission Date: 20200409
  Serious: Yes (Hospitalization, Other)
  Sender: FDA-Public Use
  Company Number: JP-009507513-1710JPN003150J

PATIENT
  Age: 59 Year
  Sex: Female
  Weight: 52 kg

DRUGS (2)
  1. CUBICIN [Suspect]
     Active Substance: DAPTOMYCIN
     Indication: STAPHYLOCOCCAL INFECTION
     Dosage: 450 MG, QD
     Route: 041
     Dates: start: 20171013, end: 20171013
  2. CEFAZOLIN SODIUM. [Concomitant]
     Active Substance: CEFAZOLIN SODIUM
     Indication: SPONDYLITIS
     Dosage: 2 G, TID
     Route: 042
     Dates: start: 20171013, end: 20171013

REACTIONS (3)
  - Pyrexia [Unknown]
  - Anaphylactic shock [Recovered/Resolved]
  - Liver disorder [Unknown]

NARRATIVE: CASE EVENT DATE: 20171013
